FAERS Safety Report 20506279 (Version 1)
Quarter: 2022Q1

REPORT INFORMATION
  Report Type: Spontaneous
  Country: US (occurrence: None)
  Receive Date: 20220222
  Receipt Date: 20220222
  Transmission Date: 20220423
  Serious: Yes (Other)
  Sender: FDA-Public Use
  Company Number: None

PATIENT
  Age: 29 Year
  Sex: Female
  Weight: 70.4 kg

DRUGS (1)
  1. EVUSHELD [Suspect]
     Active Substance: CILGAVIMAB\TIXAGEVIMAB
     Indication: COVID-19 prophylaxis
     Dates: start: 20220218, end: 20220218

REACTIONS (4)
  - Oropharyngeal pain [None]
  - Throat tightness [None]
  - Tachycardia [None]
  - Dizziness [None]

NARRATIVE: CASE EVENT DATE: 20220218
